FAERS Safety Report 21751680 (Version 1)
Quarter: 2022Q4

REPORT INFORMATION
  Report Type: Report from Study
  Country: US (occurrence: US)
  Receive Date: 20221220
  Receipt Date: 20221220
  Transmission Date: 20230112
  Serious: No
  Sender: FDA-Public Use
  Company Number: US-ACADIA PHARMACEUTICALS INC.-ACA-2022-PIM-004100

PATIENT
  Age: 75 Year
  Sex: Female

DRUGS (21)
  1. NUPLAZID [Suspect]
     Active Substance: PIMAVANSERIN TARTRATE
     Indication: Parkinson^s disease psychosis
     Dosage: 34 MILLIGRAM, QD
     Route: 065
     Dates: start: 20221123, end: 20221124
  2. ROPINIROLE [Concomitant]
     Active Substance: ROPINIROLE
  3. ONDANSETRON [Concomitant]
     Active Substance: ONDANSETRON
  4. SERTRALINE [Concomitant]
     Active Substance: SERTRALINE HYDROCHLORIDE
  5. FAMOTIDINE [Concomitant]
     Active Substance: FAMOTIDINE
  6. OMEPRAZOLE [Concomitant]
     Active Substance: OMEPRAZOLE
  7. PRIMIDONE [Concomitant]
     Active Substance: PRIMIDONE
  8. MESTINON [Concomitant]
     Active Substance: PYRIDOSTIGMINE BROMIDE
  9. VAGIFEM [Concomitant]
     Active Substance: ESTRADIOL
  10. AMLODIPINE BESYLATE [Concomitant]
     Active Substance: AMLODIPINE BESYLATE
  11. FUROSEMIDE [Concomitant]
     Active Substance: FUROSEMIDE
  12. CLONIDINE [Concomitant]
     Active Substance: CLONIDINE
  13. ASPIRIN [Concomitant]
     Active Substance: ASPIRIN
  14. POTASSIUM CHLORIDE [Concomitant]
     Active Substance: POTASSIUM CHLORIDE
  15. OLMESARTAN MEDOXOMIL [Concomitant]
     Active Substance: OLMESARTAN MEDOXOMIL
  16. BENZTROPINE MESYLATE [Concomitant]
     Active Substance: BENZTROPINE MESYLATE
  17. CLONAZEPAM [Concomitant]
     Active Substance: CLONAZEPAM
  18. CRESTOR [Concomitant]
     Active Substance: ROSUVASTATIN CALCIUM
  19. MEMANTINE [Concomitant]
     Active Substance: MEMANTINE
  20. DONEPEZIL [Concomitant]
     Active Substance: DONEPEZIL
  21. NIASPAN [Concomitant]
     Active Substance: NIACIN

REACTIONS (1)
  - Blood pressure decreased [Recovered/Resolved]

NARRATIVE: CASE EVENT DATE: 20221123
